FAERS Safety Report 14665883 (Version 3)
Quarter: 2020Q1

REPORT INFORMATION
  Report Type: Spontaneous
  Country: DE (occurrence: DE)
  Receive Date: 20180321
  Receipt Date: 20200327
  Transmission Date: 20200409
  Serious: Yes (Hospitalization, Other)
  Sender: FDA-Public Use
  Company Number: DE-ALLERGAN-1813027US

PATIENT
  Sex: Male

DRUGS (3)
  1. CLAVERSAL [Suspect]
     Active Substance: MESALAMINE
     Indication: COLITIS ULCERATIVE
     Dosage: 500 MG, QD
     Route: 048
     Dates: start: 20171124, end: 20171126
  2. COLIBIOGEN [Concomitant]
     Indication: COLITIS
     Dosage: UNK
     Route: 065
     Dates: start: 201711
  3. MESALAZINE UNK [Suspect]
     Active Substance: MESALAMINE
     Indication: COLITIS
     Dosage: 1 DF, BID
     Route: 054
     Dates: start: 20171101, end: 20171101

REACTIONS (10)
  - Arthralgia [Recovered/Resolved]
  - Hepatic enzyme increased [Recovering/Resolving]
  - Vomiting [Recovered/Resolved]
  - Influenza like illness [Recovered/Resolved]
  - Sepsis [Recovered/Resolved]
  - Nuchal rigidity [Recovered/Resolved]
  - Pyrexia [Recovering/Resolving]
  - Arrhythmia [Recovered/Resolved]
  - Chills [Recovered/Resolved]
  - Hyperhidrosis [Recovered/Resolved]

NARRATIVE: CASE EVENT DATE: 201711
